FAERS Safety Report 5545796-0 (Version None)
Quarter: 2007Q4

REPORT INFORMATION
  Report Type: 
  Country: None (occurrence: None)
  Receive Date: 20071126
  Receipt Date: 20070912
  Transmission Date: 20080405
  Serious: Yes (Hospitalization)
  Sender: FDA-Public Use
  Company Number: 2007BH006442

PATIENT
  Age: 48 Year
  Sex: Male

DRUGS (9)
  1. DIANEAL [Suspect]
     Indication: PERITONEAL DIALYSIS
     Dosage: 13.0 L; IP
     Route: 033
     Dates: start: 20070301, end: 20070622
  2. DIANEAL [Suspect]
     Indication: PERITONEAL DIALYSIS
     Dosage: 2 L; IP
     Route: 033
     Dates: start: 20070301, end: 20070622
  3. TOPROL-XL [Concomitant]
  4. AVAPRO [Concomitant]
  5. RENAGEL [Concomitant]
  6. NEPHROCAPS [Concomitant]
  7. COREG [Concomitant]
  8. DIGOXIN [Concomitant]
  9. ALTACE [Concomitant]

REACTIONS (5)
  - ASTHENIA [None]
  - CHEST PAIN [None]
  - NAUSEA [None]
  - PERITONITIS [None]
  - VOMITING [None]
